FAERS Safety Report 8876635 (Version 1)
Quarter: 2012Q4

REPORT INFORMATION
  Report Type: 
  Country: IT (occurrence: IT)
  Receive Date: 20121029
  Receipt Date: 20121029
  Transmission Date: 20130627
  Serious: Yes (Other)
  Sender: FDA-Public Use
  Company Number: PHHY2012IT094575

PATIENT
  Age: 84 Year
  Sex: Male

DRUGS (5)
  1. TAMSULOSIN [Suspect]
     Indication: BENIGN PROSTATIC HYPERPLASIA
     Dosage: 0.4 mg, Daily
     Route: 048
     Dates: start: 20120813, end: 20120816
  2. ASCRIPTIN [Concomitant]
     Route: 048
  3. CORDARONE [Concomitant]
     Route: 048
  4. SIMESTAT [Concomitant]
     Route: 048
  5. UNIPRIL [Concomitant]
     Route: 048

REACTIONS (3)
  - Neck pain [Recovered/Resolved]
  - Presyncope [Recovered/Resolved]
  - Dizziness [Recovered/Resolved]
